FAERS Safety Report 24991747 (Version 1)
Quarter: 2025Q1

REPORT INFORMATION
  Report Type: Spontaneous
  Country: DE (occurrence: None)
  Receive Date: 20250220
  Receipt Date: 20250220
  Transmission Date: 20250408
  Serious: Yes (Other)
  Sender: ALEXION PHARMACEUTICALS
  Company Number: DE-PFIZER INC-2015295805

PATIENT
  Age: 77 Year

DRUGS (6)
  1. CANDESARTAN CILEXETIL\HYDROCHLOROTHIAZIDE [Suspect]
     Active Substance: CANDESARTAN CILEXETIL\HYDROCHLOROTHIAZIDE
  2. ESOMEPRAZOLE MAGNESIUM [Suspect]
     Active Substance: ESOMEPRAZOLE MAGNESIUM
  3. ASPIRIN [Suspect]
     Active Substance: ASPIRIN
     Indication: Anticoagulant therapy
     Route: 065
  4. METAMIZOLE [Suspect]
     Active Substance: METAMIZOLE
     Route: 065
  5. NITROGLYCERIN [Suspect]
     Active Substance: NITROGLYCERIN
     Route: 065
  6. CETIRIZINE [Suspect]
     Active Substance: CETIRIZINE HYDROCHLORIDE
     Route: 065

REACTIONS (8)
  - Tinnitus [Unknown]
  - Cataract [Unknown]
  - Movement disorder [Unknown]
  - Myalgia [Unknown]
  - Cardiac disorder [Unknown]
  - Swelling face [Unknown]
  - Swollen tongue [Unknown]
  - Urticaria [Unknown]
